FAERS Safety Report 5655156-X (Version None)
Quarter: 2008Q1

REPORT INFORMATION
  Report Type: 
  Country: None (occurrence: None)
  Receive Date: 20080219
  Receipt Date: 20071101
  Transmission Date: 20080703
  Serious: No
  Sender: FDA-Public Use
  Company Number: WAES 0711USA00452

PATIENT
  Age: 52 Year
  Sex: Male
  Weight: 101.1521 kg

DRUGS (3)
  1. JANUVIA [Suspect]
     Indication: TYPE 1 DIABETES MELLITUS
     Dosage: 100 MG/DAILY/PO
     Route: 048
     Dates: start: 20071003, end: 20071008
  2. HUMULIN 70/30 [Concomitant]
  3. METFORMIN [Concomitant]

REACTIONS (1)
  - DIZZINESS [None]
